FAERS Safety Report 8952961 (Version 1)
Quarter: 2012Q4

REPORT INFORMATION
  Report Type: 
  Country: US (occurrence: US)
  Receive Date: 20121203
  Receipt Date: 20121203
  Transmission Date: 20130627
  Serious: Yes (Hospitalization)
  Sender: FDA-Public Use
  Company Number: US-AMGEN-USASP2012076133

PATIENT
  Age: 76 Year
  Sex: Male
  Weight: 105.2 kg

DRUGS (6)
  1. PROCRIT [Suspect]
     Indication: PRODUCT USED FOR UNKNOWN INDICATION
     Dosage: UNK
  2. BEVACIZUMAB [Suspect]
     Indication: LUNG NEOPLASM MALIGNANT
     Dosage: 15 mg/kg, q3wk
     Route: 042
     Dates: start: 20090410
  3. GEMZAR [Concomitant]
     Indication: LUNG NEOPLASM MALIGNANT
     Dosage: 2000 mg, 2 in 3 wk
     Route: 042
     Dates: start: 20090410
  4. ZOMETA [Concomitant]
     Indication: LUNG NEOPLASM MALIGNANT
     Dosage: 4 mg, qmo
     Dates: start: 20090521
  5. CARBOPLATIN [Concomitant]
     Indication: LUNG NEOPLASM MALIGNANT
     Dosage: 500 mg, q3wk
     Dates: start: 20090410, end: 20090611
  6. METFORMIN                          /00082702/ [Concomitant]
     Indication: DIABETES MELLITUS
     Dosage: 500 mg, bid

REACTIONS (1)
  - Pulmonary embolism [Unknown]
